FAERS Safety Report 7272171-3 (Version None)
Quarter: 2011Q1

REPORT INFORMATION
  Report Type: 
  Country: None (occurrence: None)
  Receive Date: 20110203
  Receipt Date: 20110120
  Transmission Date: 20110831
  Serious: Yes (Other)
  Sender: FDA-Public Use
  Company Number: PHHY2011US05215

PATIENT
  Sex: Male

DRUGS (6)
  1. NORVASC [Concomitant]
     Dosage: 5 MG, UNK
  2. RECLAST [Suspect]
     Dosage: 5 MG, UNK
     Route: 042
     Dates: start: 20101216
  3. RITUXAN [Concomitant]
     Dosage: 1000 MG, UNK
     Route: 042
  4. ZOCOR [Concomitant]
     Dosage: 40 MG, QD
  5. METFORMIN HCL [Concomitant]
     Dosage: 1000 MG, BID
  6. PLAQUENIL [Concomitant]
     Dosage: 200 MG, BID

REACTIONS (2)
  - SOMNOLENCE [None]
  - CONFUSIONAL STATE [None]
